FAERS Safety Report 19361441 (Version 1)
Quarter: 2021Q2

REPORT INFORMATION
  Report Type: Report from Study
  Country: KR (occurrence: KR)
  Receive Date: 20210603
  Receipt Date: 20210603
  Transmission Date: 20210717
  Serious: Yes (Other)
  Sender: FDA-Public Use
  Company Number: KR-AMGEN-KORCT2021084162

PATIENT
  Sex: Female

DRUGS (78)
  1. FILGRASTIM [Suspect]
     Active Substance: FILGRASTIM
     Dosage: 300 UNK
     Route: 065
     Dates: start: 20180719, end: 20180719
  2. PERTUZUMAB. [Concomitant]
     Active Substance: PERTUZUMAB
     Dosage: 420 MILLIGRAM
     Dates: start: 20180619, end: 20180619
  3. PERTUZUMAB. [Concomitant]
     Active Substance: PERTUZUMAB
     Dosage: 420 MILLIGRAM
     Dates: start: 20180731, end: 20180731
  4. TRASTUZUMAB. [Concomitant]
     Active Substance: TRASTUZUMAB
     Dosage: UNK
     Dates: start: 20180731, end: 20180731
  5. MOSAPRIDE [Concomitant]
     Active Substance: MOSAPRIDE
     Dosage: 15 MILLIGRAM
     Dates: start: 20190115, end: 20190221
  6. FILGRASTIM [Suspect]
     Active Substance: FILGRASTIM
     Dosage: 300 UNK
     Route: 065
     Dates: start: 20181030, end: 20181030
  7. FILGRASTIM [Suspect]
     Active Substance: FILGRASTIM
     Dosage: 300 UNK
     Route: 065
     Dates: start: 20181120, end: 20181120
  8. DOCETAXEL. [Concomitant]
     Active Substance: DOCETAXEL
     Dosage: 60 UNK
     Dates: start: 20181227, end: 20181227
  9. DOCETAXEL. [Concomitant]
     Active Substance: DOCETAXEL
     Dosage: 60 UNK
     Dates: start: 20190115, end: 20190115
  10. PERTUZUMAB. [Concomitant]
     Active Substance: PERTUZUMAB
     Indication: PRODUCT USED FOR UNKNOWN INDICATION
     Dosage: 420 MILLIGRAM
     Dates: start: 20180529, end: 20180529
  11. TRASTUZUMAB. [Concomitant]
     Active Substance: TRASTUZUMAB
     Dosage: UNK
     Dates: start: 20180529, end: 20180529
  12. TRASTUZUMAB. [Concomitant]
     Active Substance: TRASTUZUMAB
     Dosage: UNK
     Dates: start: 20181002, end: 20181002
  13. MOSAPRIDE [Concomitant]
     Active Substance: MOSAPRIDE
     Indication: PRODUCT USED FOR UNKNOWN INDICATION
     Dosage: MG
     Dates: start: 20181211, end: 20181225
  14. OXYCODONE/NALOXONE RATIOPHARM [Concomitant]
     Indication: PRODUCT USED FOR UNKNOWN INDICATION
     Dosage: 2 DOSAGE FORM
     Dates: start: 20180828, end: 20180903
  15. TRAMADOL + PARACETAMOL [Concomitant]
     Active Substance: ACETAMINOPHEN\TRAMADOL
     Indication: PRODUCT USED FOR UNKNOWN INDICATION
     Dosage: 2 DOSAGE FORM
     Dates: start: 20181120
  16. FILGRASTIM [Suspect]
     Active Substance: FILGRASTIM
     Dosage: 300 UNK
     Route: 065
     Dates: start: 20180918, end: 20180918
  17. FILGRASTIM [Suspect]
     Active Substance: FILGRASTIM
     Dosage: 300 UNK
     Route: 065
     Dates: start: 20180628, end: 20180628
  18. FILGRASTIM [Suspect]
     Active Substance: FILGRASTIM
     Dosage: 300 UNK
     Route: 065
     Dates: start: 20180918, end: 20180918
  19. DOCETAXEL. [Concomitant]
     Active Substance: DOCETAXEL
     Dosage: 60 UNK
     Dates: start: 20180911, end: 20180911
  20. DOCETAXEL. [Concomitant]
     Active Substance: DOCETAXEL
     Dosage: 60 UNK
     Dates: start: 20181113, end: 20181113
  21. PERTUZUMAB. [Concomitant]
     Active Substance: PERTUZUMAB
     Dosage: 420 MILLIGRAM
     Dates: start: 20180710, end: 20180710
  22. PERTUZUMAB. [Concomitant]
     Active Substance: PERTUZUMAB
     Dosage: 420 MILLIGRAM
     Dates: start: 20181113, end: 20181113
  23. TRASTUZUMAB. [Concomitant]
     Active Substance: TRASTUZUMAB
     Indication: PRODUCT USED FOR UNKNOWN INDICATION
     Dosage: UNK
     Dates: start: 20180509, end: 20180509
  24. TRASTUZUMAB. [Concomitant]
     Active Substance: TRASTUZUMAB
     Dosage: UNK
     Dates: start: 20181204, end: 20181204
  25. CEFADROXIL. [Concomitant]
     Active Substance: CEFADROXIL
     Indication: PRODUCT USED FOR UNKNOWN INDICATION
     Dosage: 1500 MILLIGRAM
     Dates: start: 20181120
  26. DARBEPOETIN ALFA [Concomitant]
     Active Substance: DARBEPOETIN ALFA
     Indication: PRODUCT USED FOR UNKNOWN INDICATION
     Dosage: 120 UNK
     Dates: start: 20180628
  27. DULOXETINE. [Concomitant]
     Active Substance: DULOXETINE
     Indication: PRODUCT USED FOR UNKNOWN INDICATION
     Dosage: 30 MILLIGRAM
     Dates: start: 20181002, end: 20181228
  28. TRAMADOL + PARACETAMOL [Concomitant]
     Active Substance: ACETAMINOPHEN\TRAMADOL
     Dosage: 4 DOSAGE FORM
     Dates: start: 20180821
  29. FILGRASTIM [Suspect]
     Active Substance: FILGRASTIM
     Indication: PRODUCT USED FOR UNKNOWN INDICATION
     Dosage: 300 UNK
     Route: 065
     Dates: start: 20180628, end: 20180628
  30. FILGRASTIM [Suspect]
     Active Substance: FILGRASTIM
     Dosage: 300 UNK
     Route: 065
     Dates: start: 20180828, end: 20180828
  31. FILGRASTIM [Suspect]
     Active Substance: FILGRASTIM
     Dosage: 300 UNK
     Route: 065
     Dates: start: 20181120, end: 20181120
  32. FILGRASTIM [Suspect]
     Active Substance: FILGRASTIM
     Dosage: 300 UNK
     Route: 065
     Dates: start: 20190122, end: 20190122
  33. DOCETAXEL. [Concomitant]
     Active Substance: DOCETAXEL
     Dosage: 60 UNK
     Dates: start: 20180821, end: 20180821
  34. DOCETAXEL. [Concomitant]
     Active Substance: DOCETAXEL
     Dosage: 60 UNK
     Dates: start: 20181204, end: 20181204
  35. PERTUZUMAB. [Concomitant]
     Active Substance: PERTUZUMAB
     Dosage: 420 MILLIGRAM
     Dates: start: 20180821, end: 20180821
  36. TRASTUZUMAB. [Concomitant]
     Active Substance: TRASTUZUMAB
     Dosage: UNK
     Dates: start: 20180619, end: 20180619
  37. TRASTUZUMAB. [Concomitant]
     Active Substance: TRASTUZUMAB
     Dosage: UNK
     Dates: start: 20180710, end: 20180710
  38. TRASTUZUMAB. [Concomitant]
     Active Substance: TRASTUZUMAB
     Dosage: UNK
     Dates: start: 20181227, end: 20181227
  39. LEVETIRACETAM. [Concomitant]
     Active Substance: LEVETIRACETAM
     Indication: PRODUCT USED FOR UNKNOWN INDICATION
     Dosage: 1 UNK
     Dates: start: 20180330, end: 20181210
  40. MAGNESIUM OXIDE. [Concomitant]
     Active Substance: MAGNESIUM OXIDE
     Indication: PRODUCT USED FOR UNKNOWN INDICATION
     Dosage: 1500 MILLIGRAM
     Dates: start: 20181211, end: 20181226
  41. MAGNESIUM OXIDE. [Concomitant]
     Active Substance: MAGNESIUM OXIDE
     Dosage: 1500 MILLIGRAM
     Dates: start: 20190115, end: 20190221
  42. FILGRASTIM [Suspect]
     Active Substance: FILGRASTIM
     Dosage: 300 UNK
     Route: 065
     Dates: start: 20181008, end: 20181008
  43. FILGRASTIM [Suspect]
     Active Substance: FILGRASTIM
     Dosage: 300 UNK
     Route: 065
     Dates: start: 20181030, end: 20181030
  44. PERTUZUMAB. [Concomitant]
     Active Substance: PERTUZUMAB
     Dosage: 420 MILLIGRAM
     Dates: start: 20180911, end: 20180911
  45. PERTUZUMAB. [Concomitant]
     Active Substance: PERTUZUMAB
     Dosage: 420 MILLIGRAM
     Dates: start: 20181002, end: 20181002
  46. PERTUZUMAB. [Concomitant]
     Active Substance: PERTUZUMAB
     Dosage: 420 MILLIGRAM
     Dates: start: 20181227, end: 20181227
  47. TRASTUZUMAB. [Concomitant]
     Active Substance: TRASTUZUMAB
     Dosage: UNK
     Dates: start: 20180821, end: 20180821
  48. TRASTUZUMAB. [Concomitant]
     Active Substance: TRASTUZUMAB
     Dosage: UNK
     Dates: start: 20180911, end: 20180911
  49. REBAMIPIDE [Concomitant]
     Active Substance: REBAMIPIDE
     Indication: PRODUCT USED FOR UNKNOWN INDICATION
     Dosage: 300 MILLIGRAM
     Dates: start: 20181120, end: 20181203
  50. DOCETAXEL. [Concomitant]
     Active Substance: DOCETAXEL
     Dosage: 60 UNK
     Dates: start: 20180731, end: 20180731
  51. DOCETAXEL. [Concomitant]
     Active Substance: DOCETAXEL
     Dosage: 60 UNK
     Dates: start: 20181002, end: 20181002
  52. PERTUZUMAB. [Concomitant]
     Active Substance: PERTUZUMAB
     Dosage: 420 MILLIGRAM
     Dates: start: 20181023, end: 20181023
  53. PERTUZUMAB. [Concomitant]
     Active Substance: PERTUZUMAB
     Dosage: 840 MILLIGRAM
     Dates: start: 20180509, end: 20180509
  54. TRASTUZUMAB. [Concomitant]
     Active Substance: TRASTUZUMAB
     Dosage: UNK
     Dates: start: 20181023, end: 20181023
  55. TRASTUZUMAB. [Concomitant]
     Active Substance: TRASTUZUMAB
     Dosage: UNK
     Dates: start: 20190115, end: 20190115
  56. AMOXICILLIN. [Concomitant]
     Active Substance: AMOXICILLIN
     Indication: PRODUCT USED FOR UNKNOWN INDICATION
     Dosage: 1125 MILLIGRAM
     Dates: start: 20180828, end: 20180903
  57. LEVETIRACETAM. [Concomitant]
     Active Substance: LEVETIRACETAM
     Dosage: 500 MILLIGRAM
     Dates: start: 20181211
  58. MEGESTROL [Concomitant]
     Active Substance: MEGESTROL
     Dosage: 5 UNK
     Dates: start: 20180529, end: 20181008
  59. FILGRASTIM [Suspect]
     Active Substance: FILGRASTIM
     Dosage: 300 UNK
     Route: 065
     Dates: start: 20180828, end: 20180828
  60. FILGRASTIM [Suspect]
     Active Substance: FILGRASTIM
     Dosage: 300 UNK
     Route: 065
     Dates: start: 20190122, end: 20190122
  61. DOCETAXEL. [Concomitant]
     Active Substance: DOCETAXEL
     Dosage: 60 UNK
     Dates: start: 20181023, end: 20181023
  62. CIPROFLOXACIN. [Concomitant]
     Active Substance: CIPROFLOXACIN
     Indication: PRODUCT USED FOR UNKNOWN INDICATION
     Dosage: 750 MILLIGRAM
     Dates: start: 20180828, end: 20180903
  63. ESOMEPRAZOLE. [Concomitant]
     Active Substance: ESOMEPRAZOLE MAGNESIUM
     Indication: PRODUCT USED FOR UNKNOWN INDICATION
     Dosage: 20 MILLIGRAM
     Dates: start: 20180719
  64. LOPERAMIDE [Concomitant]
     Active Substance: LOPERAMIDE
     Indication: PRODUCT USED FOR UNKNOWN INDICATION
     Dosage: 6 MILLIGRAM
     Dates: start: 20180828, end: 20180903
  65. FILGRASTIM [Suspect]
     Active Substance: FILGRASTIM
     Dosage: 300 UNK
     Route: 065
     Dates: start: 20181211, end: 20181211
  66. FILGRASTIM [Suspect]
     Active Substance: FILGRASTIM
     Dosage: 300 UNK
     Route: 065
     Dates: start: 20180719, end: 20180719
  67. FILGRASTIM [Suspect]
     Active Substance: FILGRASTIM
     Dosage: 300 UNK
     Route: 065
     Dates: start: 20181008, end: 20181008
  68. FILGRASTIM [Suspect]
     Active Substance: FILGRASTIM
     Dosage: 300 UNK
     Route: 065
     Dates: start: 20181211, end: 20181211
  69. DOCETAXEL. [Concomitant]
     Active Substance: DOCETAXEL
     Indication: PRODUCT USED FOR UNKNOWN INDICATION
     Dosage: 60 UNK
     Dates: start: 20180509, end: 20180509
  70. DOCETAXEL. [Concomitant]
     Active Substance: DOCETAXEL
     Dosage: 60 UNK
     Dates: start: 20180529, end: 20180529
  71. DOCETAXEL. [Concomitant]
     Active Substance: DOCETAXEL
     Dosage: 60 UNK
     Dates: start: 20180619, end: 20180619
  72. DOCETAXEL. [Concomitant]
     Active Substance: DOCETAXEL
     Dosage: 60 UNK
     Dates: start: 20180710, end: 20180710
  73. PERTUZUMAB. [Concomitant]
     Active Substance: PERTUZUMAB
     Dosage: 420 MILLIGRAM
     Dates: start: 20181204, end: 20181204
  74. PERTUZUMAB. [Concomitant]
     Active Substance: PERTUZUMAB
     Dosage: 420 MILLIGRAM
     Dates: start: 20190115, end: 20190115
  75. TRASTUZUMAB. [Concomitant]
     Active Substance: TRASTUZUMAB
     Dosage: UNK
     Dates: start: 20181113, end: 20181113
  76. MEGESTROL [Concomitant]
     Active Substance: MEGESTROL
     Indication: PRODUCT USED FOR UNKNOWN INDICATION
     Dosage: 5 UNK
     Dates: start: 20181127, end: 20181211
  77. OMEPRAZOLE. [Concomitant]
     Active Substance: OMEPRAZOLE
     Indication: PRODUCT USED FOR UNKNOWN INDICATION
     Dosage: 20 MILLIGRAM
     Dates: start: 20180502, end: 20180719
  78. PREGABALIN. [Concomitant]
     Active Substance: PREGABALIN
     Indication: PRODUCT USED FOR UNKNOWN INDICATION
     Dosage: 150 MILLIGRAM
     Dates: start: 20181002, end: 20181228

REACTIONS (5)
  - Chills [Recovered/Resolved]
  - Neutrophil count decreased [Recovered/Resolved]
  - Nail dystrophy [Recovering/Resolving]
  - Diarrhoea [Recovered/Resolved]
  - Neuropathy peripheral [Recovering/Resolving]

NARRATIVE: CASE EVENT DATE: 20180628
